FAERS Safety Report 21806117 (Version 4)
Quarter: 2023Q1

REPORT INFORMATION
  Report Type: Report from Study
  Country: IN (occurrence: IN)
  Receive Date: 20230102
  Receipt Date: 20230317
  Transmission Date: 20230418
  Serious: Yes (Hospitalization, Other)
  Sender: FDA-Public Use
  Company Number: IN-TAKEDA-2022TUS011023

PATIENT
  Age: 31 Year
  Sex: Female
  Weight: 55.5 kg

DRUGS (6)
  1. VEDOLIZUMAB [Suspect]
     Active Substance: VEDOLIZUMAB
     Indication: Crohn^s disease
     Dosage: 300 MILLIGRAM
     Route: 042
     Dates: start: 20210206
  2. PENTASA [Concomitant]
     Active Substance: MESALAMINE
     Dosage: 2 MILLIGRAM
  3. FOLVITE [Concomitant]
     Active Substance: FOLIC ACID
     Dosage: 5 MILLIGRAM
  4. Zincovit [Concomitant]
     Dosage: UNK
  5. OXYGEN [Concomitant]
     Active Substance: OXYGEN
     Dosage: UNK
  6. HYDROCORTISONE [Concomitant]
     Active Substance: HYDROCORTISONE
     Dosage: UNK
     Route: 042

REACTIONS (15)
  - Crohn^s disease [Unknown]
  - Infection [Unknown]
  - Malaise [Unknown]
  - Inflammation [Unknown]
  - Pain [Unknown]
  - Fistula discharge [Unknown]
  - Stress [Unknown]
  - Weight increased [Unknown]
  - Sleep disorder [Unknown]
  - Proctalgia [Unknown]
  - Asthenia [Unknown]
  - COVID-19 [Unknown]
  - Weight decreased [Unknown]
  - Inappropriate schedule of product administration [Unknown]
  - Off label use [Unknown]
